FAERS Safety Report 6581743-0 (Version None)
Quarter: 2010Q1

REPORT INFORMATION
  Report Type: 
  Country: None (occurrence: None)
  Receive Date: 20100215
  Receipt Date: 20100203
  Transmission Date: 20100710
  Serious: Yes (Other)
  Sender: FDA-Public Use
  Company Number: PHHY2009FI34874

PATIENT
  Sex: Male

DRUGS (6)
  1. LEPONEX [Suspect]
     Indication: SCHIZOPHRENIA
     Dosage: 750 MG PER DAY
     Dates: start: 20081201
  2. LEPONEX [Suspect]
     Dosage: 500 MG
  3. LEPONEX [Suspect]
     Dosage: 450 MG PER DAY
     Dates: start: 20090801
  4. RISPERDAL [Concomitant]
     Dosage: UNK
     Dates: start: 20080101
  5. OPAMOX [Concomitant]
  6. IMOVANE [Concomitant]

REACTIONS (18)
  - CHOKING [None]
  - DEAFNESS [None]
  - DIZZINESS [None]
  - DYSPNOEA [None]
  - EAR HAEMORRHAGE [None]
  - EAR PRURITUS [None]
  - EOSINOPHIL COUNT INCREASED [None]
  - FATIGUE [None]
  - HYDROPHOBIA [None]
  - INCREASED BRONCHIAL SECRETION [None]
  - MONOCYTE COUNT INCREASED [None]
  - MUSCLE SPASMS [None]
  - NASOPHARYNGITIS [None]
  - NEUTROPHIL COUNT INCREASED [None]
  - OROPHARYNGEAL PAIN [None]
  - PHOTOPHOBIA [None]
  - SALIVARY HYPERSECRETION [None]
  - WHITE BLOOD CELL COUNT INCREASED [None]
